FAERS Safety Report 4799843-4 (Version None)
Quarter: 2005Q4

REPORT INFORMATION
  Report Type: 
  Country: None (occurrence: None)
  Receive Date: 20051013
  Receipt Date: 20050926
  Transmission Date: 20060501
  Serious: Yes (Life-Threatening)
  Sender: FDA-Public Use
  Company Number: 2005BH002110

PATIENT
  Age: 65 Year
  Sex: Male

DRUGS (1)
  1. PROTAMINE VIAL (PROTAMINE) [Suspect]
     Indication: HEPARIN NEUTRALISATION THERAPY

REACTIONS (3)
  - ANAPHYLACTIC REACTION [None]
  - ARTERIOSPASM CORONARY [None]
  - HYPOTENSION [None]
